FAERS Safety Report 14986564 (Version 1)
Quarter: 2018Q2

REPORT INFORMATION
  Report Type: Spontaneous
  Country: US (occurrence: US)
  Receive Date: 20180608
  Receipt Date: 20180608
  Transmission Date: 20180711
  Serious: No
  Sender: FDA-Public Use
  Company Number: US-B.I. PHARMACEUTICALS,INC./RIDGEFIELD-2018-BI-028996

PATIENT
  Sex: Female

DRUGS (2)
  1. HCTZ [Concomitant]
     Active Substance: HYDROCHLOROTHIAZIDE
     Indication: SWELLING
     Dosage: ONCE DAILY;  FORM STRENGTH: 25 MG; FORMULATION: TABLET
     Route: 048
  2. JARDIANCE [Suspect]
     Active Substance: EMPAGLIFLOZIN
     Indication: DIABETES MELLITUS
     Route: 048
     Dates: start: 20180418

REACTIONS (5)
  - Weight decreased [Not Recovered/Not Resolved]
  - Diarrhoea [Not Recovered/Not Resolved]
  - Abdominal pain [Not Recovered/Not Resolved]
  - Flatulence [Not Recovered/Not Resolved]
  - Myalgia [Not Recovered/Not Resolved]

NARRATIVE: CASE EVENT DATE: 20180418
